FAERS Safety Report 11387736 (Version 3)
Quarter: 2019Q4

REPORT INFORMATION
  Report Type: Spontaneous
  Country: US (occurrence: US)
  Receive Date: 20150817
  Receipt Date: 20191106
  Transmission Date: 20200122
  Serious: Yes (Hospitalization, Other)
  Sender: FDA-Public Use
  Company Number: US-PFIZER INC-2015186786

PATIENT
  Age: 54 Year
  Sex: Female
  Weight: 82 kg

DRUGS (1)
  1. XELJANZ [Suspect]
     Active Substance: TOFACITINIB CITRATE
     Dosage: 5 MG, 2X/DAY

REACTIONS (6)
  - Therapeutic response unexpected [Unknown]
  - Hair growth abnormal [Unknown]
  - Cardiac disorder [Unknown]
  - Uterine cancer [Unknown]
  - Nasal pruritus [Unknown]
  - Breast cancer [Unknown]
